FAERS Safety Report 17361739 (Version 2)
Quarter: 2020Q1

REPORT INFORMATION
  Report Type: Spontaneous
  Country: MX (occurrence: MX)
  Receive Date: 20200203
  Receipt Date: 20200228
  Transmission Date: 20200409
  Serious: Yes (Hospitalization)
  Sender: FDA-Public Use
  Company Number: MX-GUERBET-MX-20200004

PATIENT
  Age: 50 Year
  Sex: Female
  Weight: 68 kg

DRUGS (1)
  1. OPTIRAY 320 [Suspect]
     Active Substance: IOVERSOL
     Indication: COMPUTERISED TOMOGRAM
     Route: 065
     Dates: start: 20200118, end: 20200118

REACTIONS (5)
  - Nausea [Recovered/Resolved]
  - Loss of consciousness [Recovered/Resolved]
  - Dyspnoea [Recovered/Resolved]
  - Muscle rigidity [Recovered/Resolved]
  - Air embolism [Recovered/Resolved]

NARRATIVE: CASE EVENT DATE: 20200118
